FAERS Safety Report 24588903 (Version 1)
Quarter: 2024Q4

REPORT INFORMATION
  Report Type: Spontaneous
  Country: AR (occurrence: AR)
  Receive Date: 20241107
  Receipt Date: 20241107
  Transmission Date: 20250115
  Serious: Yes (Death)
  Sender: PFIZER
  Company Number: AR-PFIZER INC-202400295787

PATIENT
  Age: 45 Year
  Sex: Female

DRUGS (1)
  1. TALZENNA [Suspect]
     Active Substance: TALAZOPARIB TOSYLATE
     Indication: Breast cancer metastatic
     Dosage: 1 MG, DAILY
     Dates: start: 20240109, end: 20241106

REACTIONS (1)
  - Death [Fatal]

NARRATIVE: CASE EVENT DATE: 20241106
